FAERS Safety Report 20743842 (Version 1)
Quarter: 2022Q2

REPORT INFORMATION
  Report Type: Spontaneous
  Country: NL (occurrence: NL)
  Receive Date: 20220425
  Receipt Date: 20220425
  Transmission Date: 20220721
  Serious: Yes (Other)
  Sender: FDA-Public Use
  Company Number: None

PATIENT
  Sex: Female
  Weight: 71.5 kg

DRUGS (6)
  1. SYNAREL [Suspect]
     Active Substance: NAFARELIN ACETATE
     Indication: Uterine leiomyoma
     Dosage: 200 UG, 2X/DAY (2X DAAGS 1 DOSIS, NEUSSPRAY 200MCG/DOSIS FLACON 80DO)
     Dates: start: 20210706, end: 20211008
  2. SYNAREL [Suspect]
     Active Substance: NAFARELIN ACETATE
     Dosage: 200 UG, 1X/DAY, 1X DAAGS 1 INHALATIE (HERSTART NA EERDERE STOP), NEUSSPRAY 200MCG/DOSIS FLACON 80DO
     Dates: start: 2021, end: 20211231
  3. ISOSORBIDE MONONITRATE [Concomitant]
     Active Substance: ISOSORBIDE MONONITRATE
     Dosage: TABLET MET GEREGULEERDE AFGIFTE, 120 MG (MILLIGRAM), MGA,  DURETTE
  4. FERROUS FUMARATE [Concomitant]
     Active Substance: FERROUS FUMARATE
     Dosage: TABLET, 200 MG (MILLIGRAM)
  5. DILTIAZEM [Concomitant]
     Active Substance: DILTIAZEM
     Dosage: CAPSULE MET GEREGULEERDE AFGIFTE, 180 MG (MILLIGRAM), MGA
  6. NICORANDIL [Concomitant]
     Active Substance: NICORANDIL
     Dosage: UNK

REACTIONS (7)
  - Blindness transient [Recovered/Resolved]
  - Headache [Recovering/Resolving]
  - Eye pain [Recovering/Resolving]
  - Visual impairment [Recovered/Resolved]
  - Vision blurred [Recovering/Resolving]
  - Photopsia [Recovered/Resolved]
  - Ophthalmic migraine [Recovered/Resolved]
